FAERS Safety Report 22618123 (Version 2)
Quarter: 2024Q3

REPORT INFORMATION
  Report Type: Report from Study
  Country: CA (occurrence: CA)
  Receive Date: 20230620
  Receipt Date: 20240711
  Transmission Date: 20241017
  Serious: No
  Sender: PIERRE FABRE MEDICAMENT
  Company Number: CA-PFM-2022-07080

PATIENT
  Age: 27 Year
  Sex: Female

DRUGS (11)
  1. PROPRANOLOL HYDROCHLORIDE [Suspect]
     Active Substance: PROPRANOLOL HYDROCHLORIDE
     Indication: Product used for unknown indication
     Dosage: 60 MG, UNK
     Route: 065
  2. AIMOVIG [Suspect]
     Active Substance: ERENUMAB-AOOE
     Indication: Product used for unknown indication
     Dosage: UNK
     Route: 065
  3. FLUNARIZINE [Suspect]
     Active Substance: FLUNARIZINE
     Indication: Product used for unknown indication
     Dosage: 30 MG, UNK
     Route: 065
  4. FLUNARIZINE [Suspect]
     Active Substance: FLUNARIZINE
     Dosage: 15 MG, UNK
     Route: 065
  5. FLUNARIZINE [Suspect]
     Active Substance: FLUNARIZINE
     Indication: Product used for unknown indication
     Dosage: UNK
     Route: 065
  6. IMIPRAMINE [Suspect]
     Active Substance: IMIPRAMINE
     Indication: Product used for unknown indication
     Dosage: 25 MG, UNK
     Route: 065
  7. IMIPRAMINE [Suspect]
     Active Substance: IMIPRAMINE
     Dosage: 75 MG, UNK
     Route: 065
  8. TOPIRAMATE [Suspect]
     Active Substance: TOPIRAMATE
     Indication: Migraine
     Dosage: 50 MG, UNK
     Route: 065
  9. TOPIRAMATE [Suspect]
     Active Substance: TOPIRAMATE
     Dosage: 50 MG, 2 EVERY 1 DAYS
     Route: 048
  10. TOPIRAMATE [Suspect]
     Active Substance: TOPIRAMATE
     Dosage: UNK
     Route: 065
  11. PANTOPRAZOLE SODIUM [Concomitant]
     Active Substance: PANTOPRAZOLE SODIUM
     Indication: Product used for unknown indication
     Dosage: 40 MG, QD (1/DAY)
     Route: 048

REACTIONS (5)
  - Weight decreased [Recovered/Resolved]
  - Drug intolerance [Recovered/Resolved]
  - Drug ineffective [Unknown]
  - Product use issue [Unknown]
  - Off label use [Unknown]
